FAERS Safety Report 9844607 (Version 1)
Quarter: 2014Q1

REPORT INFORMATION
  Report Type: Spontaneous
  Country: IT (occurrence: None)
  Receive Date: 20140122
  Receipt Date: 20140122
  Transmission Date: 20141002
  Serious: Yes (Other)
  Sender: FDA-Public Use
  Company Number: FK201400098

PATIENT
  Age: 22 Year
  Sex: Male

DRUGS (5)
  1. PACLITAXEL [Suspect]
     Indication: LUNG CARCINOMA CELL TYPE UNSPECIFIED STAGE IV
     Route: 042
     Dates: start: 20131206, end: 20131227
  2. NEXIUM I.V. [Concomitant]
  3. SOLDESAM (DEXAMETHASONE SODIUM PHOSHATE) [Concomitant]
  4. KYTRIL (GRANISETRON HYDROCHLORIDE) [Concomitant]
  5. TRIMETON (CHLORPHENAMINE MALEATE) [Concomitant]

REACTIONS (3)
  - Laryngeal oedema [None]
  - Loss of consciousness [None]
  - Respiratory disorder [None]
